FAERS Safety Report 4550711-2 (Version None)
Quarter: 2004Q4

REPORT INFORMATION
  Report Type: 
  Country: None (occurrence: None)
  Receive Date: 20041217
  Receipt Date: 20041027
  Transmission Date: 20050328
  Serious: No
  Sender: FDA-Public Use
  Company Number: 2004-BP-10862BP

PATIENT
  Sex: Female

DRUGS (9)
  1. SPIRIVA [Suspect]
     Indication: CHRONIC OBSTRUCTIVE AIRWAYS DISEASE
     Dosage: 18 MCG (18 MCG) IH
     Route: 055
  2. PREDNISONE [Concomitant]
  3. ATIVAN [Concomitant]
  4. SINGULAIR (MONTELUKAST) [Concomitant]
  5. ANTIVERT [Concomitant]
  6. LIPITOR [Concomitant]
  7. ZOLOFT [Concomitant]
  8. ALBUTEROL [Concomitant]
  9. DDAVP [Concomitant]

REACTIONS (1)
  - PRODUCTIVE COUGH [None]
